FAERS Safety Report 26027949 (Version 2)
Quarter: 2025Q4

REPORT INFORMATION
  Report Type: Report from Study
  Country: US (occurrence: US)
  Receive Date: 20251111
  Receipt Date: 20251113
  Transmission Date: 20260117
  Serious: Yes (Death, Other)
  Sender: ACADIA PHARMACEUTICALS
  Company Number: US-ACADIA PHARMACEUTICALS INC.-ACA-2025-PIM-012016

PATIENT
  Age: 80 Year
  Sex: Male

DRUGS (9)
  1. NUPLAZID [Suspect]
     Active Substance: PIMAVANSERIN TARTRATE
     Indication: Parkinson^s disease
     Dosage: 34 MILLIGRAM, QD (TAKE ONE CAPSULE PER ORAL EVERY NIGHT AT BEDTIME)
     Route: 048
     Dates: start: 20231122, end: 20251025
  2. ATORVASTATIN [Concomitant]
     Active Substance: ATORVASTATIN
  3. DONEPEZIL [Concomitant]
     Active Substance: DONEPEZIL
  4. ELIQUIS [Concomitant]
     Active Substance: APIXABAN
  5. FISH OIL [Concomitant]
     Active Substance: FISH OIL
  6. MEMANTINE [Concomitant]
     Active Substance: MEMANTINE
  7. SINEMET [Concomitant]
     Active Substance: CARBIDOPA\LEVODOPA
  8. VITAMIN C [Concomitant]
     Active Substance: ASCORBIC ACID
  9. SERTRALINE [Concomitant]
     Active Substance: SERTRALINE HYDROCHLORIDE

REACTIONS (1)
  - Pneumonia aspiration [Fatal]

NARRATIVE: CASE EVENT DATE: 20251025
